FAERS Safety Report 7231873-5 (Version None)
Quarter: 2011Q1

REPORT INFORMATION
  Report Type: 
  Country: None (occurrence: None)
  Receive Date: 20110118
  Receipt Date: 20110110
  Transmission Date: 20110831
  Serious: Yes (Hospitalization, Other)
  Sender: FDA-Public Use
  Company Number: US-PFIZER INC-2011006333

PATIENT
  Sex: Female
  Weight: 126.98 kg

DRUGS (2)
  1. PHENOBARBITAL [Concomitant]
     Dosage: UNK
  2. DILANTIN [Suspect]
     Indication: TEMPORAL LOBE EPILEPSY
     Dosage: 200 MG, 2X/DAY
     Route: 048
     Dates: start: 19650701

REACTIONS (6)
  - OSTEOPOROSIS [None]
  - PNEUMONIA BACTERIAL [None]
  - CYSTITIS [None]
  - BLOOD PRESSURE INCREASED [None]
  - CONVULSION [None]
  - BLOOD CHOLESTEROL INCREASED [None]
